FAERS Safety Report 24680411 (Version 1)
Quarter: 2024Q4

REPORT INFORMATION
  Report Type: Spontaneous
  Country: US (occurrence: US)
  Receive Date: 20241129
  Receipt Date: 20241129
  Transmission Date: 20250114
  Serious: No
  Sender: BRACCO
  Company Number: US-BRACCO-2024US05031

PATIENT
  Age: 67 Year
  Sex: Male

DRUGS (15)
  1. LUMASON [Suspect]
     Active Substance: SULFUR HEXAFLUORIDE
     Indication: Echocardiogram
     Dosage: 1
     Route: 042
     Dates: start: 20240813, end: 20240813
  2. LUMASON [Suspect]
     Active Substance: SULFUR HEXAFLUORIDE
     Indication: Echocardiogram
     Dosage: 1
     Route: 042
     Dates: start: 20240813, end: 20240813
  3. LUMASON [Suspect]
     Active Substance: SULFUR HEXAFLUORIDE
     Indication: Echocardiogram
     Dosage: 1
     Route: 042
     Dates: start: 20240813, end: 20240813
  4. AMOXICILLIN [Concomitant]
     Active Substance: AMOXICILLIN
  5. ATORVASTATIN [Concomitant]
     Active Substance: ATORVASTATIN
  6. ELIQUIS [Concomitant]
     Active Substance: APIXABAN
  7. GABAPENTIN [Concomitant]
     Active Substance: GABAPENTIN
  8. GLIPIZIDE [Concomitant]
     Active Substance: GLIPIZIDE
  9. HYDROCODONE [Concomitant]
     Active Substance: HYDROCODONE
  10. LASIX [Concomitant]
     Active Substance: FUROSEMIDE
  11. LISINOPRIL [Concomitant]
     Active Substance: LISINOPRIL
  12. METFORMIN [Concomitant]
     Active Substance: METFORMIN HYDROCHLORIDE
  13. METOPROLOL [Concomitant]
     Active Substance: METOPROLOL
  14. SPIRONOLACTONE [Concomitant]
     Active Substance: SPIRONOLACTONE
  15. TORSEMIDE [Concomitant]
     Active Substance: TORSEMIDE

REACTIONS (2)
  - Nausea [Recovered/Resolved]
  - Vomiting [Recovered/Resolved]

NARRATIVE: CASE EVENT DATE: 20240813
